FAERS Safety Report 17519016 (Version 1)
Quarter: 2020Q1

REPORT INFORMATION
  Report Type: Spontaneous
  Country: CA (occurrence: CA)
  Receive Date: 20200310
  Receipt Date: 20200310
  Transmission Date: 20200409
  Serious: Yes (Death, Hospitalization, Other)
  Sender: FDA-Public Use
  Company Number: CA-TEVA-2020-CA-1197368

PATIENT
  Age: 76 Year
  Sex: Male
  Weight: 84 kg

DRUGS (26)
  1. ENBREL [Suspect]
     Active Substance: ETANERCEPT
     Indication: RHEUMATOID ARTHRITIS
     Route: 058
  2. ALPRAZOLAM. [Concomitant]
     Active Substance: ALPRAZOLAM
  3. APO ALPRAZ [Concomitant]
  4. APO-PREDNISONE [Concomitant]
     Active Substance: PREDNISONE
  5. FLOVENT [Concomitant]
     Active Substance: FLUTICASONE PROPIONATE
     Route: 065
  6. ARAVA [Concomitant]
     Active Substance: LEFLUNOMIDE
  7. FOLIC ACID. [Concomitant]
     Active Substance: FOLIC ACID
  8. METHOTREXATE. [Suspect]
     Active Substance: METHOTREXATE
     Indication: RHEUMATOID ARTHRITIS
     Route: 065
  9. APO NADOL [Concomitant]
     Active Substance: NADOLOL
  10. FLOVENT [Concomitant]
     Active Substance: FLUTICASONE PROPIONATE
     Route: 065
  11. FLUOROURACIL. [Concomitant]
     Active Substance: FLUOROURACIL
     Dosage: 10 PERCENT DAILY;
     Route: 061
  12. FOLIC ACID. [Concomitant]
     Active Substance: FOLIC ACID
     Route: 065
  13. RAN DOMPERIDONE [Concomitant]
     Dosage: 30 MICROGRAM DAILY;
  14. DESOXIMETASONE. [Suspect]
     Active Substance: DESOXIMETASONE
     Indication: PRODUCT USED FOR UNKNOWN INDICATION
     Route: 065
  15. CHOLECALCIFEROL [Concomitant]
     Active Substance: CHOLECALCIFEROL
  16. DOMPERIDONE [Concomitant]
     Active Substance: DOMPERIDONE
     Dosage: 30 MICROGRAM DAILY;
  17. VITAMIN D3 [Concomitant]
     Active Substance: CHOLECALCIFEROL
  18. MINT AMLODIPINE [Concomitant]
     Indication: SLEEP DISORDER
     Dosage: 5 MILLIGRAM DAILY;
  19. REMICADE [Concomitant]
     Active Substance: INFLIXIMAB
     Route: 042
  20. AMLODIPINE BESILATE [Concomitant]
     Active Substance: AMLODIPINE BESYLATE
     Indication: SLEEP DISORDER
  21. FLUOROURACIL. [Concomitant]
     Active Substance: FLUOROURACIL
     Dosage: 10 PERCENT DAILY;
     Route: 061
  22. FOLIC ACID. [Concomitant]
     Active Substance: FOLIC ACID
  23. JAMP VITAMIN D3 [Concomitant]
  24. NADOLOL. [Concomitant]
     Active Substance: NADOLOL
  25. APO-ALPRAZOLAM [Concomitant]
  26. PANTOPRAZOLE [Concomitant]
     Active Substance: PANTOPRAZOLE
     Dosage: 40 MILLIGRAM DAILY;

REACTIONS (3)
  - General physical health deterioration [Fatal]
  - Osteoarthritis [Fatal]
  - Metastases to liver [Fatal]
